FAERS Safety Report 5498642-8 (Version None)
Quarter: 2007Q4

REPORT INFORMATION
  Report Type: 
  Country: None (occurrence: None)
  Receive Date: 20071024
  Receipt Date: 20051014
  Transmission Date: 20080405
  Serious: Yes (Death)
  Sender: FDA-Public Use
  Company Number: GXKR2005GB01797

PATIENT
  Age: 49 Year
  Sex: Male

DRUGS (3)
  1. CODEINE PHOSPHATE (NGX)(CODEINE PHOAPHATE) UNKNOWN [Suspect]
  2. AMITRIPTYLINE HYDROCHLORIDE [Suspect]
     Indication: DEPRESSION
  3. MORPHINE [Suspect]

REACTIONS (3)
  - DRUG INTERACTION [None]
  - INTENTIONAL DRUG MISUSE [None]
  - SUDDEN DEATH [None]
